FAERS Safety Report 6950820-4 (Version None)
Quarter: 2010Q3

REPORT INFORMATION
  Report Type: 
  Country: None (occurrence: None)
  Receive Date: 20100828
  Receipt Date: 20100223
  Transmission Date: 20110219
  Serious: No
  Sender: FDA-Public Use
  Company Number: US-ABBOTT-10P-163-0629403-00

PATIENT
  Sex: Male
  Weight: 108.51 kg

DRUGS (5)
  1. NIASPAN [Suspect]
     Indication: BLOOD CHOLESTEROL INCREASED
     Route: 048
     Dates: start: 20081101, end: 20091201
  2. NIASPAN [Suspect]
     Route: 048
     Dates: start: 20100220
  3. NIASPAN [Suspect]
     Route: 048
  4. TRICOR [Suspect]
     Indication: BLOOD CHOLESTEROL INCREASED
     Dosage: DOSE UNKNOWN
     Route: 048
     Dates: start: 20081201, end: 20091201
  5. TRICOR [Suspect]
     Route: 048

REACTIONS (3)
  - ANGER [None]
  - ANXIETY [None]
  - FEELING ABNORMAL [None]
